FAERS Safety Report 8106917-9 (Version None)
Quarter: 2012Q1

REPORT INFORMATION
  Report Type: 
  Country: None (occurrence: None)
  Receive Date: 20120130
  Receipt Date: 20120116
  Transmission Date: 20120608
  Serious: Yes (Death)
  Sender: FDA-Public Use
  Company Number: 2012POI057500008

PATIENT
  Age: 35 Year
  Sex: Male

DRUGS (8)
  1. DIPHENHYDRAMINE HCL [Suspect]
     Dates: end: 20100101
  2. ROXICODONE [Suspect]
     Dates: end: 20100101
  3. DIAZEPAM [Suspect]
     Dates: end: 20100101
  4. ETHANOL [Suspect]
     Dates: end: 20100101
  5. ACETAMINOPHEN [Suspect]
     Dates: end: 20100101
  6. CLORAZEPATE DIPOTASSIUM [Suspect]
     Dates: end: 20100101
  7. HYDROCODONE BITARTRATE [Suspect]
     Dates: end: 20100101
  8. DARVON [Suspect]
     Dates: end: 20100101

REACTIONS (4)
  - COMPLETED SUICIDE [None]
  - CARDIAC ARREST [None]
  - RESPIRATORY ARREST [None]
  - ASPIRATION [None]
